FAERS Safety Report 8814721 (Version 2)
Quarter: 2012Q4

REPORT INFORMATION
  Report Type: Report from Study
  Country: US (occurrence: US)
  Receive Date: 20120928
  Receipt Date: 20121029
  Transmission Date: 20130627
  Serious: Yes (Hospitalization, Other)
  Sender: FDA-Public Use
  Company Number: US-JNJFOC-20120800451

PATIENT
  Sex: Female
  Weight: 86.18 kg

DRUGS (50)
  1. REMICADE [Suspect]
     Indication: RHEUMATOID ARTHRITIS
     Route: 042
     Dates: start: 20080603
  2. REMICADE [Suspect]
     Indication: RHEUMATOID ARTHRITIS
     Dosage: 8 bottles added to intravenous
     Route: 042
     Dates: start: 20120326, end: 20120326
  3. POTASSIUM CLAVULANATE [Concomitant]
     Indication: OSTEOPOROSIS
     Route: 065
  4. MICARDIS [Concomitant]
     Indication: BLOOD PRESSURE
     Route: 048
     Dates: start: 20120224
  5. LEVOTHYROXINE [Concomitant]
     Route: 065
  6. FUROSEMIDE [Concomitant]
     Route: 048
     Dates: start: 20100412
  7. ROPINIROLE [Concomitant]
     Route: 065
  8. METOPROLOL [Concomitant]
     Route: 065
  9. SUCCINIC ACID [Concomitant]
     Route: 065
  10. CYMBALTA [Concomitant]
     Route: 065
  11. HYDROXYCHLOROQUINE [Concomitant]
     Route: 065
  12. CLONAZEPAM [Concomitant]
     Route: 065
  13. GABAPENTIN [Concomitant]
     Route: 065
  14. LANSOPRAZOLE [Concomitant]
     Route: 065
  15. ASPIRIN [Concomitant]
     Route: 065
  16. CALCIUM W/VITAMIN D [Concomitant]
     Route: 048
     Dates: start: 20060802
  17. VITAMIN C AND D [Concomitant]
     Route: 065
  18. HYDROCODONE [Concomitant]
     Route: 065
  19. XOPENEX [Concomitant]
     Dosage: Inhale 3 ml once
     Route: 055
     Dates: start: 20080715
  20. VOLTAREN [Concomitant]
     Indication: ARTHRITIS
     Route: 062
     Dates: start: 20110902
  21. VITAMIN D [Concomitant]
     Route: 048
     Dates: start: 20090317
  22. SYMBICORT [Concomitant]
     Route: 055
     Dates: start: 20120921
  23. SOLUCORTEF [Concomitant]
     Indication: PREMEDICATION
     Route: 050
     Dates: start: 20080603
  24. ALL OTHER THERAPEUTICS [Concomitant]
     Route: 004
     Dates: start: 20101103
  25. ROPINIROLE HYDROCHLORIDE [Concomitant]
     Route: 048
     Dates: start: 20111229
  26. PROBIOTICA [Concomitant]
     Route: 065
  27. PRAMIPEXOLE DIHYDROCHLORIDE [Concomitant]
     Route: 048
     Dates: start: 20091214
  28. POTASSIUM CHLORIDE [Concomitant]
     Dosage: with lasix
     Route: 048
     Dates: start: 20071212
  29. LASIX [Concomitant]
     Route: 065
  30. POLYETHYLENE GLYCOL [Concomitant]
     Route: 048
     Dates: start: 20070219
  31. OXYCONTIN [Concomitant]
     Route: 048
     Dates: start: 20111129
  32. ONDANSETRON HYDROCHLORIDE [Concomitant]
     Dosage: 4 mg/2 ml diluted with 10 ml normal saline SIVP
     Route: 065
     Dates: start: 20090819
  33. METOPROLOL SUCCINATE [Concomitant]
     Route: 048
     Dates: start: 20091109
  34. CARAFATE [Concomitant]
     Route: 048
  35. CLONAZEPAM [Concomitant]
     Route: 048
     Dates: start: 20060802
  36. CYANOCOBALAMIN [Concomitant]
     Route: 050
     Dates: start: 20120326
  37. CYANOCOBALAMIN [Concomitant]
     Route: 050
  38. CYMBALTA [Concomitant]
     Route: 048
     Dates: start: 20110901
  39. CYMBALTA [Concomitant]
     Route: 048
     Dates: start: 20110901
  40. DEXILANT [Concomitant]
     Route: 048
     Dates: start: 20100921
  41. ESTRACE [Concomitant]
     Route: 067
     Dates: start: 20110419
  42. FLUTICASONE PROPIONATE [Concomitant]
     Route: 045
     Dates: start: 20120314
  43. FORTEO [Concomitant]
     Route: 058
     Dates: start: 20120927
  44. GABAPENTIN [Concomitant]
     Route: 048
     Dates: start: 20110405
  45. HYDROCODONE ACETAMINOPHEN [Concomitant]
     Route: 048
     Dates: start: 20061012
  46. HYDROXYCHLOROQUINE SULFATE [Concomitant]
     Route: 048
     Dates: start: 20060802
  47. LANSOPRAZOLE [Concomitant]
     Route: 048
     Dates: start: 20111229
  48. LEVOTHYROXINE SODIUM [Concomitant]
     Route: 048
     Dates: start: 20060801
  49. LIDODERM [Concomitant]
     Route: 065
     Dates: start: 20080227
  50. LOSARTAN POTASSIUM [Concomitant]
     Route: 048
     Dates: start: 20120921

REACTIONS (8)
  - Enterocutaneous fistula [Recovering/Resolving]
  - Wound infection [Recovering/Resolving]
  - Skin ulcer [Recovered/Resolved with Sequelae]
  - Groin abscess [Recovered/Resolved with Sequelae]
  - Pain in extremity [Recovered/Resolved with Sequelae]
  - Abdominal pain upper [Recovered/Resolved with Sequelae]
  - Abscess rupture [Recovering/Resolving]
  - Pain [Recovered/Resolved with Sequelae]
